FAERS Safety Report 5229966-7 (Version None)
Quarter: 2007Q1

REPORT INFORMATION
  Report Type: 
  Country: None (occurrence: None)
  Receive Date: 20070206
  Receipt Date: 20060728
  Transmission Date: 20070707
  Serious: No
  Sender: FDA-Public Use
  Company Number: US-GLAXOSMITHKLINE-A0613974A

PATIENT
  Age: 29 Year
  Sex: Male

DRUGS (3)
  1. PAROXETINE HCL [Suspect]
     Indication: ANXIETY
     Dosage: 40MG PER DAY
     Route: 048
     Dates: end: 20060701
  2. MULTI-VITAMIN [Concomitant]
  3. DIOVAN HCT [Concomitant]

REACTIONS (11)
  - DIARRHOEA [None]
  - FALL [None]
  - HYPERHIDROSIS [None]
  - ILL-DEFINED DISORDER [None]
  - MALAISE [None]
  - MUSCLE SPASMS [None]
  - MYALGIA [None]
  - NAUSEA [None]
  - ORTHOSTATIC HYPOTENSION [None]
  - VERTIGO [None]
  - VOMITING [None]
